FAERS Safety Report 9513263 (Version 4)
Quarter: 2013Q4

REPORT INFORMATION
  Report Type: Spontaneous
  Country: US (occurrence: US)
  Receive Date: 20130910
  Receipt Date: 20131106
  Transmission Date: 20140711
  Serious: Yes (Hospitalization, Other)
  Sender: FDA-Public Use
  Company Number: US-009507513-1309USA000969

PATIENT
  Sex: Female
  Weight: 70.66 kg

DRUGS (11)
  1. FOSAMAX PLUS D [Suspect]
     Indication: OSTEOPOROSIS
     Dosage: 70 MG/2800IU, QW
     Route: 048
     Dates: start: 20060619, end: 20100417
  2. FOSAMAX [Suspect]
     Indication: OSTEOPOROSIS
     Dosage: UNK
     Route: 048
     Dates: start: 200411
  3. ALENDRONATE SODIUM [Suspect]
     Indication: OSTEOPOROSIS
     Dosage: 70 MG, QW
     Route: 048
     Dates: start: 2009, end: 2010
  4. ALENDRONATE SODIUM [Suspect]
     Indication: OSTEOPENIA
  5. BONIVA [Suspect]
     Indication: OSTEOPOROSIS
     Dosage: 150 MG, UNK
     Route: 048
     Dates: start: 20100417, end: 20110704
  6. SYNTHROID [Concomitant]
     Indication: HYPOTHYROIDISM
     Dosage: UNK
     Dates: start: 1970
  7. VITAMIN D (UNSPECIFIED) [Concomitant]
     Dosage: 1000 MG, UNK
     Dates: start: 2008
  8. VITAMIN D (UNSPECIFIED) [Concomitant]
     Dosage: 800 IU, QD
  9. ASCORBIC ACID [Concomitant]
     Dosage: UNK
     Dates: start: 2008
  10. CALCIUM (UNSPECIFIED) [Concomitant]
     Dosage: 1200 MG, UNK
     Dates: start: 2008
  11. CALCIUM (UNSPECIFIED) [Concomitant]
     Dosage: 1000 MG, QD

REACTIONS (5)
  - Femur fracture [Recovered/Resolved]
  - Intramedullary rod insertion [Unknown]
  - Low turnover osteopathy [Unknown]
  - QRS axis abnormal [Unknown]
  - Back pain [Unknown]
